FAERS Safety Report 4852502-1 (Version None)
Quarter: 2005Q4

REPORT INFORMATION
  Report Type: 
  Country: None (occurrence: None)
  Receive Date: 20051213
  Receipt Date: 20051105
  Transmission Date: 20060501
  Serious: Yes (Hospitalization, Other)
  Sender: FDA-Public Use
  Company Number: GB-BOEHRINGER INGELHEIM PHARMACEUTICALS, INC.-2005-BP-21323YA

PATIENT
  Sex: Male

DRUGS (11)
  1. TAMSULOSIN HCL [Suspect]
     Indication: URINARY RETENTION
     Route: 048
     Dates: start: 20050816
  2. NATEGLINIDE [Suspect]
     Indication: GLUCOSE TOLERANCE IMPAIRED
     Route: 048
     Dates: start: 20030611
  3. PLACEBO [Suspect]
     Indication: GLUCOSE TOLERANCE IMPAIRED
     Route: 048
     Dates: start: 20030611
  4. VALSARTAN [Suspect]
     Indication: CARDIOVASCULAR DISORDER
     Route: 048
     Dates: start: 20030611
  5. PLACEBO [Suspect]
     Indication: CARDIOVASCULAR DISORDER
     Route: 048
     Dates: start: 20030611
  6. ASPIRIN [Concomitant]
  7. ATENOLOL [Concomitant]
  8. SIMVASTATIN [Concomitant]
  9. GTN-S [Concomitant]
  10. ARTHROTEC [Concomitant]
  11. OMEPRAZOLE [Concomitant]

REACTIONS (7)
  - CULTURE URINE [None]
  - DISEASE PROGRESSION [None]
  - ESCHERICHIA URINARY TRACT INFECTION [None]
  - HAEMATURIA [None]
  - HYPOTENSION [None]
  - URINARY RETENTION [None]
  - URINARY TRACT OBSTRUCTION [None]
